FAERS Safety Report 4318515-3 (Version None)
Quarter: 2004Q1

REPORT INFORMATION
  Report Type: 
  Country: None (occurrence: None)
  Receive Date: 20040316
  Receipt Date: 20040316
  Transmission Date: 20041129
  Serious: Yes (Hospitalization, Other)
  Sender: FDA-Public Use
  Company Number: None

PATIENT
  Age: 55 Year
  Sex: Female
  Weight: 63.5036 kg

DRUGS (5)
  1. LIPITOR [Suspect]
     Dosage: 1 PER DAY-
     Dates: start: 20031129, end: 20031202
  2. LIPITOR [Suspect]
     Dosage: 1 PER DAY-
     Dates: start: 20031202, end: 20031205
  3. LIPITOR [Suspect]
     Dosage: 1 PER DAY-
     Dates: start: 20031101
  4. LIPITOR [Suspect]
     Dosage: 1 PER DAY-
     Dates: start: 20031106
  5. LIPITOR [Suspect]
     Dosage: 1 PER DAY-
     Dates: start: 20031123

REACTIONS (7)
  - CHEST PAIN [None]
  - CHOKING [None]
  - DYSPNOEA [None]
  - MEDICATION ERROR [None]
  - MIGRAINE [None]
  - PRURITUS [None]
  - URTICARIA [None]
